FAERS Safety Report 24131928 (Version 3)
Quarter: 2025Q1

REPORT INFORMATION
  Report Type: Spontaneous
  Country: US (occurrence: US)
  Receive Date: 20240724
  Receipt Date: 20250107
  Transmission Date: 20250408
  Serious: Yes (Hospitalization)
  Sender: ROCHE
  Company Number: US-ROCHE-10000028906

PATIENT
  Age: 10 Month

DRUGS (1)
  1. OCREVUS [Suspect]
     Active Substance: OCRELIZUMAB
     Indication: Product used for unknown indication
     Route: 063
     Dates: start: 20240603, end: 20240618

REACTIONS (7)
  - Respiratory syncytial virus infection [Recovered/Resolved]
  - Exposure via breast milk [Unknown]
  - CD19 lymphocyte count abnormal [Unknown]
  - Blood immunoglobulin G abnormal [Unknown]
  - White blood cell count abnormal [Unknown]
  - Neutrophil count abnormal [Unknown]
  - Lymphocyte count abnormal [Unknown]
